FAERS Safety Report 26083768 (Version 1)
Quarter: 2025Q4

REPORT INFORMATION
  Report Type: Spontaneous
  Country: US (occurrence: US)
  Receive Date: 20251124
  Receipt Date: 20251124
  Transmission Date: 20260117
  Serious: No
  Sender: PFIZER
  Company Number: US-PFIZER INC-202500225991

PATIENT
  Age: 68 Year
  Sex: Male

DRUGS (3)
  1. AZITHROMYCIN [Suspect]
     Active Substance: AZITHROMYCIN
     Dosage: UNK
     Dates: start: 202507, end: 20250929
  2. CEFOXITIN [Suspect]
     Active Substance: CEFOXITIN SODIUM
     Dosage: UNK
     Dates: start: 202507, end: 20250929
  3. AMIKACIN [Suspect]
     Active Substance: AMIKACIN
     Dosage: UNK
     Dates: start: 202507

REACTIONS (3)
  - Rash maculo-papular [Recovering/Resolving]
  - Eosinophilia [Unknown]
  - Pruritus [Recovering/Resolving]

NARRATIVE: CASE EVENT DATE: 20250101
